FAERS Safety Report 4706366-7 (Version None)
Quarter: 2005Q3

REPORT INFORMATION
  Report Type: 
  Country: None (occurrence: None)
  Receive Date: 20050705
  Receipt Date: 20050622
  Transmission Date: 20060218
  Serious: Yes (Other)
  Sender: FDA-Public Use
  Company Number: JP-BRISTOL-MYERS SQUIBB COMPANY-13014311

PATIENT
  Age: 78 Year
  Sex: Female

DRUGS (1)
  1. FUNGIZONE [Suspect]
     Indication: MONARTHRITIS
     Route: 042

REACTIONS (1)
  - ARTHRITIS INFECTIVE [None]
